FAERS Safety Report 8576742-3 (Version None)
Quarter: 2012Q3

REPORT INFORMATION
  Report Type: 
  Country: None (occurrence: None)
  Receive Date: 20120807
  Receipt Date: 20120731
  Transmission Date: 20120928
  Serious: No
  Sender: FDA-Public Use
  Company Number: US-B.I. PHARMACEUTICALS,INC./RIDGEFIELD-2012-BP-17247BP

PATIENT
  Sex: Male

DRUGS (4)
  1. MONOPRIL [Concomitant]
     Indication: BLOOD PRESSURE ABNORMAL
  2. PRADAXA [Suspect]
     Indication: MITRAL VALVE PROLAPSE
     Dosage: 300 MG
     Route: 048
     Dates: start: 20110101
  3. CORGARD [Concomitant]
     Indication: BLOOD PRESSURE
  4. LANOXIN [Concomitant]
     Indication: CARDIAC FAILURE

REACTIONS (3)
  - NAUSEA [None]
  - FOREIGN BODY [None]
  - OLIGURIA [None]
